FAERS Safety Report 5814618-2 (Version None)
Quarter: 2008Q3

REPORT INFORMATION
  Report Type: 
  Country: None (occurrence: None)
  Receive Date: 20080718
  Receipt Date: 20080102
  Transmission Date: 20090109
  Serious: No
  Sender: FDA-Public Use
  Company Number: US-KINGPHARMUSA00001-K200800007

PATIENT

DRUGS (4)
  1. LEVOXYL [Suspect]
     Indication: THYROID DISORDER
     Dosage: 125 MCG, QD
     Route: 048
     Dates: start: 20071221
  2. ARMOUR THYROID [Concomitant]
     Dates: start: 20070701
  3. TOPROL-XL [Concomitant]
     Indication: ARRHYTHMIA
     Dates: start: 20020101
  4. FLECAINIDE ACETATE [Concomitant]
     Indication: ARRHYTHMIA
     Dates: start: 20020101

REACTIONS (4)
  - BLOOD THYROID STIMULATING HORMONE INCREASED [None]
  - FATIGUE [None]
  - INSOMNIA [None]
  - THYROXINE DECREASED [None]
